FAERS Safety Report 18446650 (Version 1)
Quarter: 2020Q4

REPORT INFORMATION
  Report Type: Report from Study
  Country: US (occurrence: US)
  Receive Date: 20201030
  Receipt Date: 20201030
  Transmission Date: 20210114
  Serious: Yes (Hospitalization)
  Sender: FDA-Public Use
  Company Number: US-EISAI MEDICAL RESEARCH-EC-2020-082985

PATIENT
  Age: 69 Year
  Sex: Female

DRUGS (5)
  1. KEYTRUDA [Concomitant]
     Active Substance: PEMBROLIZUMAB
  2. LENVIMA [Suspect]
     Active Substance: LENVATINIB
     Route: 048
     Dates: start: 20200628, end: 2020
  3. LENVIMA [Suspect]
     Active Substance: LENVATINIB
     Route: 048
     Dates: start: 2020, end: 20200911
  4. LENVIMA [Suspect]
     Active Substance: LENVATINIB
     Indication: ENDOMETRIAL CANCER
     Route: 048
     Dates: start: 20200428, end: 2020
  5. LENVIMA [Suspect]
     Active Substance: LENVATINIB
     Route: 048
     Dates: start: 2020, end: 20200626

REACTIONS (7)
  - Blood sodium decreased [Unknown]
  - Lipase abnormal [Unknown]
  - Asthenia [Unknown]
  - Feeding disorder [Unknown]
  - Amylase abnormal [Unknown]
  - Gait inability [Unknown]
  - Diarrhoea [Unknown]

NARRATIVE: CASE EVENT DATE: 20200820
